FAERS Safety Report 17572025 (Version 1)
Quarter: 2020Q1

REPORT INFORMATION
  Report Type: Report from Study
  Country: AU (occurrence: AU)
  Receive Date: 20200323
  Receipt Date: 20200323
  Transmission Date: 20200409
  Serious: Yes (Death)
  Sender: FDA-Public Use
  Company Number: AU-ASTRAZENECA-2020SE40836

PATIENT
  Sex: Female

DRUGS (1)
  1. IMFINZI [Suspect]
     Active Substance: DURVALUMAB
     Indication: LARGE CELL LUNG CANCER STAGE III
     Dosage: 620.0MG UNKNOWN
     Route: 042
     Dates: start: 20190318

REACTIONS (1)
  - Death [Fatal]
